FAERS Safety Report 4701202-7 (Version None)
Quarter: 2005Q2

REPORT INFORMATION
  Report Type: 
  Country: None (occurrence: None)
  Receive Date: 20050113
  Receipt Date: 20050113
  Transmission Date: 20051028
  Serious: No
  Sender: FDA-Public Use
  Company Number: None

PATIENT
  Age: 87 Year
  Sex: Female

DRUGS (1)
  1. LOTENSIN [Suspect]
     Indication: BLOOD PRESSURE
     Dosage: 20MG AM , 40MG PM
     Dates: start: 20040301

REACTIONS (1)
  - DRUG INEFFECTIVE [None]
